FAERS Safety Report 24012673 (Version 1)
Quarter: 2024Q2

REPORT INFORMATION
  Report Type: Spontaneous
  Country: US (occurrence: US)
  Receive Date: 20240626
  Receipt Date: 20240626
  Transmission Date: 20240715
  Serious: Yes (Other)
  Sender: FDA-Public Use
  Company Number: US-PRINSTON PHARMACEUTICAL INC.-2023PRN00260

PATIENT
  Sex: Female

DRUGS (4)
  1. DULOXETINE [Suspect]
     Active Substance: DULOXETINE
     Indication: Post-traumatic stress disorder
     Dosage: UNK
     Dates: end: 2022
  2. DULOXETINE [Suspect]
     Active Substance: DULOXETINE
     Dosage: UNK
  3. DULOXETINE [Suspect]
     Active Substance: DULOXETINE
     Dosage: WEANING BY COUNTING PELLETS
  4. FLUOXETINE [Suspect]
     Active Substance: FLUOXETINE HYDROCHLORIDE
     Indication: Post-traumatic stress disorder
     Dosage: UNK
     Dates: start: 2022

REACTIONS (9)
  - Seizure [Recovering/Resolving]
  - Withdrawal syndrome [Not Recovered/Not Resolved]
  - Hypoaesthesia [Recovering/Resolving]
  - Autoscopy [Recovering/Resolving]
  - Confusional state [Recovering/Resolving]
  - Myalgia [Recovering/Resolving]
  - Vision blurred [Recovering/Resolving]
  - Wrong technique in product usage process [Not Recovered/Not Resolved]
  - Product use in unapproved indication [Not Recovered/Not Resolved]

NARRATIVE: CASE EVENT DATE: 20220101
